FAERS Safety Report 4359884-8 (Version None)
Quarter: 2004Q2

REPORT INFORMATION
  Report Type: 
  Country: None (occurrence: None)
  Receive Date: 20040517
  Receipt Date: 20040517
  Transmission Date: 20050107
  Serious: Yes (Other)
  Sender: FDA-Public Use
  Company Number: None

PATIENT
  Age: 55 Year
  Sex: Male
  Weight: 65.7716 kg

DRUGS (1)
  1. TAXOL [Suspect]
     Indication: TONSIL CANCER
     Dosage: 40 MG/M2

REACTIONS (9)
  - BALANCE DISORDER [None]
  - BLOOD PRESSURE SYSTOLIC INCREASED [None]
  - BODY TEMPERATURE INCREASED [None]
  - CHILLS [None]
  - DIZZINESS [None]
  - HEART RATE INCREASED [None]
  - LOOSE STOOLS [None]
  - NAUSEA [None]
  - VOMITING [None]
